FAERS Safety Report 8538837-X (Version None)
Quarter: 2012Q3

REPORT INFORMATION
  Report Type: 
  Country: None (occurrence: None)
  Receive Date: 20120711
  Receipt Date: 20120626
  Transmission Date: 20120928
  Serious: Yes (Hospitalization)
  Sender: FDA-Public Use
  Company Number: 2012PROUSA01570

PATIENT
  Age: 64 Year
  Sex: Male
  Weight: 79.8 kg

DRUGS (11)
  1. EFFEXOR [Concomitant]
  2. ADDERALL 10 [Concomitant]
  3. PRILOSEC [Concomitant]
  4. PROVENGE [Suspect]
  5. ZOLOFT [Concomitant]
  6. PROVENGE [Suspect]
     Indication: PROSTATE CANCER METASTATIC
     Dosage: 250 ML, SINGLE, INTRAVENOUS
     Route: 042
     Dates: start: 20120220, end: 20120220
  7. PROVENGE [Suspect]
     Indication: PROSTATE CANCER METASTATIC
     Dosage: 250 ML, SINGLE, INTRAVENOUS
     Route: 042
     Dates: start: 20120305, end: 20120305
  8. PROVENGE [Suspect]
     Indication: PROSTATE CANCER METASTATIC
     Dosage: 250 ML, SINGLE, INTRAVENOUS
     Route: 042
     Dates: start: 20120402, end: 20120402
  9. OXYCODONE HCL [Concomitant]
  10. PROVENGE [Suspect]
  11. FLEXERIL [Concomitant]

REACTIONS (20)
  - HYDRONEPHROSIS [None]
  - HELICOBACTER GASTRITIS [None]
  - HIATUS HERNIA [None]
  - WEIGHT DECREASED [None]
  - CONSTIPATION [None]
  - CROHN'S DISEASE [None]
  - RENAL ATROPHY [None]
  - INFLAMMATORY BOWEL DISEASE [None]
  - HYPOPHAGIA [None]
  - WEIGHT INCREASED [None]
  - MICROCYTIC ANAEMIA [None]
  - VOMITING [None]
  - OEDEMA PERIPHERAL [None]
  - HYPOKALAEMIA [None]
  - SCROTAL OEDEMA [None]
  - INTESTINAL MUCOSAL HYPERTROPHY [None]
  - RENAL FAILURE ACUTE [None]
  - NAUSEA [None]
  - DECREASED APPETITE [None]
  - GASTROINTESTINAL HYPOMOTILITY [None]
